FAERS Safety Report 5043896-5 (Version None)
Quarter: 2006Q2

REPORT INFORMATION
  Report Type: 
  Country: None (occurrence: None)
  Receive Date: 20060629
  Receipt Date: 20060623
  Transmission Date: 20061013
  Serious: Yes (Death)
  Sender: FDA-Public Use
  Company Number: 200308636

PATIENT
  Age: 77 Year
  Sex: Female

DRUGS (7)
  1. ESTREPTOQUINASA [Suspect]
     Indication: MYOCARDIAL INFARCTION
     Dosage: 1.5 MIU DAILY IV
     Route: 042
     Dates: start: 20030323, end: 20030323
  2. ASPIRIN [Suspect]
     Indication: MYOCARDIAL INFARCTION
     Dosage: 500 MG DAILY PO
     Route: 048
     Dates: start: 20030323, end: 20030323
  3. ENOXAPARIN SODIUM [Suspect]
     Indication: MYOCARDIAL INFARCTION
     Dates: start: 20030323, end: 20030323
  4. FUROSEMIDE [Concomitant]
  5. ENALAPRIL MALEATE [Concomitant]
  6. NITRATES [Concomitant]
  7. MORPHINE [Concomitant]

REACTIONS (3)
  - CARDIOGENIC SHOCK [None]
  - HYPOTENSION [None]
  - PULMONARY OEDEMA [None]
